FAERS Safety Report 19632969 (Version 1)
Quarter: 2021Q3

REPORT INFORMATION
  Report Type: Report from Study
  Country: US (occurrence: US)
  Receive Date: 20210729
  Receipt Date: 20210729
  Transmission Date: 20211014
  Serious: Yes (Hospitalization, Other)
  Sender: FDA-Public Use
  Company Number: US-BRISTOL-MYERS SQUIBB COMPANY-BMS-2021-072939

PATIENT
  Age: 40 Year
  Sex: Male
  Weight: 74.84 kg

DRUGS (1)
  1. APIXABAN [Suspect]
     Active Substance: APIXABAN
     Indication: PULMONARY EMBOLISM
     Dosage: UNK
     Route: 048
     Dates: start: 202012

REACTIONS (4)
  - Dehydration [Unknown]
  - Facial bones fracture [Unknown]
  - Contusion [Unknown]
  - Vein disorder [Unknown]

NARRATIVE: CASE EVENT DATE: 20210723
